FAERS Safety Report 5328418-3 (Version None)
Quarter: 2007Q2

REPORT INFORMATION
  Report Type: 
  Country: None (occurrence: None)
  Receive Date: 20070515
  Receipt Date: 20070515
  Transmission Date: 20071010
  Serious: Yes (Other)
  Sender: FDA-Public Use
  Company Number: None

PATIENT
  Age: 45 Year
  Sex: Female
  Weight: 65 kg

DRUGS (2)
  1. PROPOFOL [Suspect]
     Indication: ANAESTHESIA
     Dosage: 300MG IV
     Route: 042
  2. LIDOCAINE 10MG/ML HOSPIRA [Suspect]
     Indication: ANAESTHESIA
     Dosage: 20MG IV
     Route: 042

REACTIONS (1)
  - POSTOPERATIVE FEVER [None]
